FAERS Safety Report 21584712 (Version 1)
Quarter: 2022Q4

REPORT INFORMATION
  Report Type: Spontaneous
  Country: CN (occurrence: CN)
  Receive Date: 20221111
  Receipt Date: 20221111
  Transmission Date: 20230112
  Serious: Yes (Life-Threatening)
  Sender: FDA-Public Use
  Company Number: CN-PFIZER INC-PV202200101431

PATIENT
  Age: 72 Year
  Sex: Female
  Weight: 53 kg

DRUGS (6)
  1. CYTARABINE [Suspect]
     Active Substance: CYTARABINE
     Indication: Acute myeloid leukaemia
     Dosage: 15.000 MG, 2X/DAY
     Route: 058
     Dates: start: 20221017, end: 20221023
  2. IDARUBICIN HYDROCHLORIDE [Suspect]
     Active Substance: IDARUBICIN HYDROCHLORIDE
     Indication: Acute myeloid leukaemia
     Dosage: 5.000 MG, ALTERNATE DAY
     Route: 042
     Dates: start: 20221017, end: 20221023
  3. AZACITIDINE [Suspect]
     Active Substance: AZACITIDINE
     Indication: Acute myeloid leukaemia
     Dosage: 0.100 G, 1X/DAY
     Route: 058
     Dates: start: 20221016, end: 20221023
  4. SODIUM CHLORIDE [Concomitant]
     Active Substance: SODIUM CHLORIDE
     Indication: Vehicle solution use
     Dosage: 2.000 ML, 1X/DAY
     Route: 042
     Dates: start: 20221017, end: 20221023
  5. STERILE WATER [Concomitant]
     Active Substance: WATER
     Indication: Vehicle solution use
     Dosage: 4.000 ML, 1X/DAY
     Route: 058
     Dates: start: 20221016, end: 20221023
  6. STERILE WATER [Concomitant]
     Active Substance: WATER
     Dosage: 5.000 ML, ALTERNATE DAY
     Route: 042
     Dates: start: 20221017, end: 20221023

REACTIONS (1)
  - Myelosuppression [Recovering/Resolving]

NARRATIVE: CASE EVENT DATE: 20221025
